FAERS Safety Report 17486432 (Version 1)
Quarter: 2020Q1

REPORT INFORMATION
  Report Type: Spontaneous
  Country: US (occurrence: US)
  Receive Date: 20200303
  Receipt Date: 20200303
  Transmission Date: 20200409
  Serious: Yes (Hospitalization, Other)
  Sender: FDA-Public Use
  Company Number: US-009507513-2002USA009192

PATIENT
  Sex: Female
  Weight: 76.66 kg

DRUGS (2)
  1. REMERON [Suspect]
     Active Substance: MIRTAZAPINE
     Indication: SLEEP DISORDER
     Dosage: UNK
     Route: 048
  2. ZOFRAN [Interacting]
     Active Substance: ONDANSETRON HYDROCHLORIDE
     Dosage: 8 MG THREE TIMES A DAY

REACTIONS (10)
  - Loss of consciousness [Unknown]
  - Feeling abnormal [Unknown]
  - Drug interaction [Unknown]
  - Skin burning sensation [Unknown]
  - Wrong technique in product usage process [Unknown]
  - Post-traumatic stress disorder [Unknown]
  - Nausea [Unknown]
  - Rash [Unknown]
  - Skin exfoliation [Unknown]
  - Serotonin syndrome [Unknown]
